FAERS Safety Report 5581176-X (Version None)
Quarter: 2007Q4

REPORT INFORMATION
  Report Type: 
  Country: None (occurrence: None)
  Receive Date: 20071227
  Receipt Date: 20071213
  Transmission Date: 20080405
  Serious: Yes (Other)
  Sender: FDA-Public Use
  Company Number: GXKR2007FR10683

PATIENT

DRUGS (2)
  1. CLARITHROMYCIN [Suspect]
  2. CARBAMAZEPINE [Suspect]

REACTIONS (6)
  - ANTICONVULSANT DRUG LEVEL ABOVE THERAPEUTIC [None]
  - DRUG INTERACTION [None]
  - DYSARTHRIA [None]
  - HYPONATRAEMIA [None]
  - IIIRD NERVE PARESIS [None]
  - NYSTAGMUS [None]
